FAERS Safety Report 9173894 (Version 2)
Quarter: 2013Q1

REPORT INFORMATION
  Report Type: Spontaneous
  Country: US (occurrence: None)
  Receive Date: 20130318
  Receipt Date: 20130319
  Transmission Date: 20140127
  Serious: Yes (Other)
  Sender: FDA-Public Use
  Company Number: 2013SA025524

PATIENT
  Sex: Female

DRUGS (1)
  1. CAPZASIN [Suspect]
     Indication: NEURALGIA

REACTIONS (2)
  - Application site burn [None]
  - Ill-defined disorder [None]
